FAERS Safety Report 24358722 (Version 4)
Quarter: 2025Q1

REPORT INFORMATION
  Report Type: Spontaneous
  Country: US (occurrence: US)
  Receive Date: 20240924
  Receipt Date: 20250117
  Transmission Date: 20250409
  Serious: No
  Sender: PFIZER
  Company Number: US-PFIZER INC-PV202400123756

PATIENT
  Age: 76 Year
  Sex: Female

DRUGS (13)
  1. DOCETAXEL [Suspect]
     Active Substance: DOCETAXEL
     Indication: Sarcoma metastatic
     Dates: start: 20220603, end: 20221007
  2. DOCETAXEL [Suspect]
     Active Substance: DOCETAXEL
     Dates: start: 20221007, end: 20221028
  3. DOCETAXEL [Suspect]
     Active Substance: DOCETAXEL
     Dates: start: 20221125
  4. DOCETAXEL [Suspect]
     Active Substance: DOCETAXEL
     Dates: start: 20220603, end: 20240705
  5. DOCETAXEL [Suspect]
     Active Substance: DOCETAXEL
     Indication: Sarcoma metastatic
     Dates: start: 20220603, end: 20221007
  6. DOCETAXEL [Suspect]
     Active Substance: DOCETAXEL
     Dates: start: 20221007, end: 20221028
  7. DOCETAXEL [Suspect]
     Active Substance: DOCETAXEL
     Dates: start: 20221125
  8. DOCETAXEL [Suspect]
     Active Substance: DOCETAXEL
     Indication: Sarcoma metastatic
     Dates: start: 20220603, end: 20221007
  9. DOCETAXEL [Suspect]
     Active Substance: DOCETAXEL
     Dates: start: 20221007, end: 20221028
  10. DOCETAXEL [Suspect]
     Active Substance: DOCETAXEL
     Dates: start: 20221125
  11. GEMCITABINE [Concomitant]
     Active Substance: GEMCITABINE
     Indication: Chemotherapy
  12. PAZOPANIB [Concomitant]
     Active Substance: PAZOPANIB
     Indication: Chemotherapy
  13. TEMOZOLOMIDE [Concomitant]
     Active Substance: TEMOZOLOMIDE
     Indication: Chemotherapy

REACTIONS (2)
  - Lacrimation increased [Not Recovered/Not Resolved]
  - Lacrimal structure injury [Not Recovered/Not Resolved]

NARRATIVE: CASE EVENT DATE: 20220801
